FAERS Safety Report 8368324-3 (Version None)
Quarter: 2012Q2

REPORT INFORMATION
  Report Type: 
  Country: None (occurrence: None)
  Receive Date: 20120517
  Receipt Date: 20120504
  Transmission Date: 20120825
  Serious: Yes (Other)
  Sender: FDA-Public Use
  Company Number: CHPA2012US010388

PATIENT
  Sex: Female

DRUGS (2)
  1. EXCEDRIN (MIGRAINE) [Concomitant]
     Indication: PAIN
     Dosage: 2 DF, ONCE/SINGLE
     Route: 048
     Dates: start: 20120401, end: 20120401
  2. EXCEDRIN EXTRA STRENGTH TABLETS [Suspect]
     Indication: PAIN
     Dosage: 2 DF AT A TIME, TOTAL OF 12 PER MONTH
     Route: 048

REACTIONS (11)
  - NERVE INJURY [None]
  - NERVE COMPRESSION [None]
  - FRACTURED COCCYX [None]
  - SPINAL DEFORMITY [None]
  - HYPOMETABOLISM [None]
  - HEADACHE [None]
  - INTERVERTEBRAL DISC PROTRUSION [None]
  - SENSATION OF PRESSURE [None]
  - SPINAL FRACTURE [None]
  - ROAD TRAFFIC ACCIDENT [None]
  - OSTEOPOROSIS [None]
